FAERS Safety Report 16987816 (Version 1)
Quarter: 2019Q4

REPORT INFORMATION
  Report Type: Spontaneous
  Country: GB (occurrence: GB)
  Receive Date: 20191104
  Receipt Date: 20191104
  Transmission Date: 20200122
  Serious: Yes (Disabling)
  Sender: FDA-Public Use
  Company Number: GB-DEXPHARM-20190924

PATIENT
  Age: 64 Year
  Sex: Female
  Weight: 113 kg

DRUGS (13)
  1. FUROSEMIDE. [Concomitant]
     Active Substance: FUROSEMIDE
  2. HYDROXOCOBALAMIN [Concomitant]
     Active Substance: HYDROXOCOBALAMIN
  3. OMEPRAZOLE. [Suspect]
     Active Substance: OMEPRAZOLE
     Indication: DUODENAL ULCER
     Route: 042
     Dates: start: 20190928, end: 20191001
  4. PARACETAMOL [Concomitant]
     Active Substance: ACETAMINOPHEN
  5. HUMULIN M3 [Concomitant]
     Active Substance: INSULIN HUMAN
  6. SEEBRI BREEZHALER [Concomitant]
     Active Substance: GLYCOPYRROLATE
  7. RELVAR ELLIPTA [Concomitant]
     Active Substance: FLUTICASONE FUROATE\VILANTEROL TRIFENATATE
     Dosage: 92/22
  8. TRAMADOL. [Concomitant]
     Active Substance: TRAMADOL
  9. FLUVASTATIN [Concomitant]
     Active Substance: FLUVASTATIN SODIUM
  10. SALBUTAMOL [Concomitant]
     Active Substance: ALBUTEROL
  11. CODEINE [Concomitant]
     Active Substance: CODEINE
  12. METFORMIN [Concomitant]
     Active Substance: METFORMIN HYDROCHLORIDE
  13. CITALOPRAM [Concomitant]
     Active Substance: CITALOPRAM HYDROBROMIDE

REACTIONS (1)
  - Blindness [Unknown]

NARRATIVE: CASE EVENT DATE: 20190928
